FAERS Safety Report 10133704 (Version 1)
Quarter: 2014Q2

REPORT INFORMATION
  Report Type: Spontaneous
  Country: US (occurrence: US)
  Receive Date: 20140428
  Receipt Date: 20140428
  Transmission Date: 20141212
  Serious: Yes (Life-Threatening, Hospitalization)
  Sender: FDA-Public Use
  Company Number: US-ASTRAZENECA-2014SE28395

PATIENT
  Age: 65 Year
  Sex: Female
  Weight: 57 kg

DRUGS (28)
  1. LISINOPRIL+HYDROCHLOROTHIAZIDE [Suspect]
     Dosage: 20/25 MG DAILY IN THE MORNING
     Route: 048
  2. LISINOPRIL+HYDROCHLOROTHIAZIDE [Suspect]
     Dosage: 20/25 MG DAILY IN THE MORNING
     Route: 048
  3. CARVEDILOL [Concomitant]
  4. PRAVASTATIN [Concomitant]
  5. BUPROPRION [Concomitant]
  6. ASPIRIN [Concomitant]
  7. MIDAZOLAM [Concomitant]
     Route: 042
  8. MIDAZOLAM [Concomitant]
     Route: 042
  9. FENTANYL [Concomitant]
     Indication: INDUCTION OF ANAESTHESIA
  10. FENTANYL [Concomitant]
     Indication: INDUCTION OF ANAESTHESIA
  11. PROPOFOL [Concomitant]
     Indication: INDUCTION OF ANAESTHESIA
  12. PROPOFOL [Concomitant]
     Indication: INDUCTION OF ANAESTHESIA
  13. ROCURONIUM [Concomitant]
     Indication: INDUCTION OF ANAESTHESIA
  14. ROCURONIUM [Concomitant]
     Indication: INDUCTION OF ANAESTHESIA
  15. DEXAMETHASONE [Concomitant]
  16. CEFTRIAXONE [Concomitant]
  17. NITROUS OXIDE (N2O) AND OXYGEN MIXTURE [Concomitant]
     Indication: ANAESTHESIA
     Dosage: 50:50
  18. NITROUS OXIDE (N2O) AND OXYGEN MIXTURE [Concomitant]
     Indication: ANAESTHESIA
     Dosage: 50:50
  19. ISOFLURANE [Concomitant]
     Indication: ANAESTHESIA
  20. ISOFLURANE [Concomitant]
     Indication: ANAESTHESIA
  21. REMIFENTANIL [Concomitant]
     Indication: ANAESTHESIA
     Dosage: 0.1 UG/KG/MIN
  22. REMIFENTANIL [Concomitant]
     Indication: ANAESTHESIA
     Dosage: 0.1 UG/KG/MIN
  23. NORMAL SALINE [Concomitant]
     Dosage: ONE L OF IV
     Route: 042
  24. PHENYLEPHRINE [Concomitant]
     Dosage: 0.5 UG/KG/MIN
  25. PHENYLEPHRINE [Concomitant]
     Dosage: 0.75 UG/KG/MIN
  26. PHENYLEPHRINE [Concomitant]
     Dosage: 0.5 UG/KG/MIN
  27. EPHEDRINE [Concomitant]
     Dosage: 15 MG TOTAL DOSE
     Route: 040
  28. DOPAMINE [Concomitant]
     Indication: PROPHYLAXIS
     Dosage: 10 UG/KG/MIN

REACTIONS (2)
  - Cardiac arrest [Unknown]
  - Procedural hypotension [Unknown]
